FAERS Safety Report 5500342-2 (Version None)
Quarter: 2007Q4

REPORT INFORMATION
  Report Type: 
  Country: None (occurrence: None)
  Receive Date: 20071029
  Receipt Date: 20071024
  Transmission Date: 20080405
  Serious: Yes (Hospitalization, Other)
  Sender: FDA-Public Use
  Company Number: FR-BRISTOL-MYERS SQUIBB COMPANY-13957139

PATIENT
  Sex: Female

DRUGS (5)
  1. APROVEL TABS [Suspect]
     Indication: ESSENTIAL HYPERTENSION
     Route: 048
  2. APROVEL TABS [Suspect]
     Indication: ISCHAEMIC CARDIOMYOPATHY
     Route: 048
  3. PLAVIX [Concomitant]
     Route: 048
  4. ASPIRIN [Concomitant]
     Route: 048
  5. PRAVASTATIN SODIUM [Concomitant]
     Route: 048

REACTIONS (1)
  - CUTANEOUS VASCULITIS [None]
